FAERS Safety Report 6803365-6 (Version None)
Quarter: 2010Q2

REPORT INFORMATION
  Report Type: 
  Country: None (occurrence: None)
  Receive Date: 20100628
  Receipt Date: 20100616
  Transmission Date: 20101027
  Serious: Yes (Hospitalization, Other)
  Sender: FDA-Public Use
  Company Number: FR-PFIZER INC-2010078401

PATIENT
  Age: 46 Year
  Sex: Female

DRUGS (13)
  1. ATARAX [Suspect]
     Indication: PREMEDICATION
     Dosage: 75 MG, 1X/DAY
     Route: 048
     Dates: start: 20100519, end: 20100520
  2. PROPOFOL [Suspect]
     Indication: ANAESTHESIA
     Dosage: UNK
     Route: 042
     Dates: start: 20100520, end: 20100520
  3. ATRACURIUM [Suspect]
     Indication: ANAESTHESIA
     Dosage: UNK
     Route: 042
     Dates: start: 20100520, end: 20100520
  4. SEVORANE [Suspect]
     Indication: ANAESTHESIA
     Dosage: UNK
     Dates: start: 20100520, end: 20100520
  5. NORMACOL [Suspect]
     Indication: ENEMA ADMINISTRATION
     Dosage: UNK
     Route: 054
     Dates: start: 20100519, end: 20100519
  6. POVIDONE-IODINE [Suspect]
     Indication: PREOPERATIVE CARE
     Dosage: UNK
     Route: 003
     Dates: start: 20100519, end: 20100520
  7. BETADINE [Suspect]
     Indication: PREOPERATIVE CARE
     Dosage: UNK
     Route: 067
     Dates: start: 20100520, end: 20100520
  8. DROPERIDOL [Suspect]
     Dosage: UNK
     Route: 042
     Dates: start: 20100520, end: 20100520
  9. AUGMENTIN '125' [Suspect]
     Indication: ANAESTHETIC PREMEDICATION
     Dosage: 2 G, 2G/200MG
     Route: 042
     Dates: start: 20100520, end: 20100520
  10. ENTONOX [Suspect]
     Indication: ANAESTHESIA
     Dosage: INHALATION
     Dates: start: 20100520, end: 20100520
  11. SUFENTA PRESERVATIVE FREE [Suspect]
     Indication: ANAESTHESIA
     Dosage: UNK
     Route: 042
     Dates: start: 20100520, end: 20100520
  12. LODOZ [Concomitant]
  13. LEVOTHYROXINE SODIUM [Concomitant]

REACTIONS (5)
  - HAEMATURIA [None]
  - HAEMOLYSIS [None]
  - LYMPHOPENIA [None]
  - OLIGURIA [None]
  - RENAL FAILURE ACUTE [None]
